FAERS Safety Report 8763832 (Version 1)
Quarter: 2012Q4

REPORT INFORMATION
  Report Type: 
  Country: IT (occurrence: IT)
  Receive Date: 20120831
  Receipt Date: 20120831
  Transmission Date: 20130627
  Serious: Yes (Other)
  Sender: FDA-Public Use
  Company Number: IT-MYLANLABS-2012S1017370

PATIENT
  Age: 79 Year
  Sex: Male

DRUGS (9)
  1. LEVOFLOXACIN [Suspect]
     Indication: BRONCHITIS
     Route: 048
     Dates: start: 20120531, end: 20120605
  2. AZITHROMYCIN [Interacting]
     Indication: BRONCHITIS
     Route: 048
     Dates: start: 20120528, end: 20120530
  3. COUMADIN [Interacting]
     Indication: ATRIAL FIBRILLATION
     Route: 048
     Dates: start: 20100906, end: 20120531
  4. LIMPIDEX [Concomitant]
     Indication: PRODUCT USED FOR UNKNOWN INDICATION
  5. ENAPREN [Concomitant]
     Indication: PRODUCT USED FOR UNKNOWN INDICATION
  6. AVODART [Concomitant]
     Indication: PRODUCT USED FOR UNKNOWN INDICATION
  7. DILATREND [Concomitant]
     Indication: PRODUCT USED FOR UNKNOWN INDICATION
  8. ATORVASTATINA [Concomitant]
     Indication: PRODUCT USED FOR UNKNOWN INDICATION
  9. RIFACOL [Concomitant]
     Indication: PRODUCT USED FOR UNKNOWN INDICATION

REACTIONS (2)
  - Drug interaction [Recovered/Resolved]
  - International normalised ratio increased [Recovered/Resolved]
